FAERS Safety Report 18434706 (Version 1)
Quarter: 2020Q4

REPORT INFORMATION
  Report Type: Spontaneous
  Country: DE (occurrence: DE)
  Receive Date: 20201028
  Receipt Date: 20201028
  Transmission Date: 20210114
  Serious: Yes (Other)
  Sender: FDA-Public Use
  Company Number: DE-B.I. PHARMACEUTICALS,INC./RIDGEFIELD-2020-BI-056311

PATIENT
  Age: 82 Year
  Sex: Male
  Weight: 83 kg

DRUGS (3)
  1. GILOTRIF [Suspect]
     Active Substance: AFATINIB
     Dosage: 1-0-0 ?PAUSE ON SATURDAY AND SUNDAY
     Route: 048
     Dates: start: 201911
  2. GILOTRIF [Suspect]
     Active Substance: AFATINIB
     Indication: NON-SMALL CELL LUNG CANCER
     Dosage: 1-0-0
     Route: 048
     Dates: start: 201710
  3. GILOTRIF [Suspect]
     Active Substance: AFATINIB
     Indication: EGFR GENE MUTATION
     Dosage: 1-0-0
     Route: 048
     Dates: start: 201804

REACTIONS (7)
  - Off label use [Unknown]
  - Diarrhoea [Unknown]
  - Paronychia [Unknown]
  - Hepatic lesion [Unknown]
  - Acne [Unknown]
  - Paronychia [Recovered/Resolved]
  - Hepatocellular carcinoma [Unknown]

NARRATIVE: CASE EVENT DATE: 201803
